FAERS Safety Report 16421102 (Version 1)
Quarter: 2019Q2

REPORT INFORMATION
  Report Type: Spontaneous
  Country: US (occurrence: US)
  Receive Date: 20190612
  Receipt Date: 20190612
  Transmission Date: 20190711
  Serious: No
  Sender: FDA-Public Use
  Company Number: US-TEVA-2019-US-1053808

PATIENT
  Sex: Female

DRUGS (1)
  1. NORETHINDRONE ACETATE. [Suspect]
     Active Substance: NORETHINDRONE ACETATE
     Indication: VAGINAL HAEMORRHAGE
     Dates: start: 20190515

REACTIONS (2)
  - Expired product administered [Unknown]
  - Drug ineffective [Unknown]
